FAERS Safety Report 18347729 (Version 1)
Quarter: 2020Q4

REPORT INFORMATION
  Report Type: Spontaneous
  Country: GB (occurrence: GB)
  Receive Date: 20201006
  Receipt Date: 20201006
  Transmission Date: 20210114
  Serious: Yes (Death, Hospitalization, Other)
  Sender: FDA-Public Use
  Company Number: GB-AUROBINDO-AUR-APL-2020-050501

PATIENT
  Age: 40 Year
  Sex: Male
  Weight: 104 kg

DRUGS (11)
  1. METHADONE [Suspect]
     Active Substance: METHADONE HYDROCHLORIDE
     Dosage: 90 MILLILITER, ONCE A DAY
     Route: 048
     Dates: start: 20111025
  2. METHADONE [Suspect]
     Active Substance: METHADONE HYDROCHLORIDE
     Dosage: 80 MILLILITER, ONCE A DAY
     Route: 048
     Dates: start: 20111027
  3. ORAMORPH [Concomitant]
     Active Substance: MORPHINE SULFATE
     Indication: CROHN^S DISEASE
     Dosage: 100 MILLIGRAM, ONCE A DAY
     Route: 048
     Dates: start: 20110707
  4. DIAZEPAM. [Concomitant]
     Active Substance: DIAZEPAM
     Indication: ANXIETY
     Dosage: 2 MILLIGRAM
     Route: 048
     Dates: start: 20111019
  5. METHADONE [Suspect]
     Active Substance: METHADONE HYDROCHLORIDE
     Indication: PAIN
     Dosage: 70 MILLILITER, ONCE A DAY
     Route: 048
     Dates: start: 20111028, end: 20111030
  6. LANSOPRAZOLE. [Concomitant]
     Active Substance: LANSOPRAZOLE
     Indication: GASTRITIS
     Dosage: 30 MILLIGRAM, ONCE A DAY
     Route: 048
     Dates: start: 20111019
  7. HUMIRA [Concomitant]
     Active Substance: ADALIMUMAB
     Indication: CROHN^S DISEASE
     Dosage: 40 MILLIGRAM, EVERY WEEK
     Route: 030
     Dates: start: 20111005
  8. VENTOLIN [Concomitant]
     Active Substance: ALBUTEROL SULFATE
     Indication: PRODUCT USED FOR UNKNOWN INDICATION
     Dosage: UNK
     Route: 065
  9. ADCAL D3 [Concomitant]
     Active Substance: CALCIUM CARBONATE\CHOLECALCIFEROL
     Indication: CROHN^S DISEASE
     Dosage: 2 DOSAGE FORM, ONCE A DAY
     Route: 048
     Dates: start: 20110808
  10. CLARITHROMYCIN. [Suspect]
     Active Substance: CLARITHROMYCIN
     Indication: LOWER RESPIRATORY TRACT INFECTION
     Dosage: 1000 MILLIGRAM, ONCE A DAY
     Route: 048
     Dates: start: 20111028
  11. MULTIVITAMINS [Concomitant]
     Active Substance: VITAMINS
     Indication: PRODUCT USED FOR UNKNOWN INDICATION
     Dosage: UNK
     Route: 065

REACTIONS (21)
  - Dysarthria [Unknown]
  - Somnolence [Unknown]
  - Oropharyngeal pain [Unknown]
  - Toxicity to various agents [Fatal]
  - Hyperhidrosis [Unknown]
  - Diffuse alveolar damage [Fatal]
  - C-reactive protein increased [Unknown]
  - Vomiting [Unknown]
  - Hiccups [Unknown]
  - Dysuria [Unknown]
  - Inhibitory drug interaction [Not Recovered/Not Resolved]
  - Heart rate increased [Unknown]
  - White blood cell count increased [Unknown]
  - Malaise [Unknown]
  - Erythema [Unknown]
  - Rectal haemorrhage [Unknown]
  - Blood urine [Unknown]
  - Crohn^s disease [Unknown]
  - Pharyngeal erythema [Unknown]
  - Headache [Unknown]
  - Tremor [Unknown]

NARRATIVE: CASE EVENT DATE: 20111027
